FAERS Safety Report 11335387 (Version 1)
Quarter: 2015Q3

REPORT INFORMATION
  Report Type: Spontaneous
  Country: US (occurrence: None)
  Receive Date: 20150731
  Receipt Date: 20150731
  Transmission Date: 20151125
  Serious: Yes (Other)
  Sender: FDA-Public Use
  Company Number: None

PATIENT
  Age: 47 Year
  Sex: Female

DRUGS (1)
  1. ETOMIDATE 20 MG/10ML VIAL HOSPIRA [Suspect]
     Active Substance: ETOMIDATE

REACTIONS (4)
  - Screaming [None]
  - Product quality issue [None]
  - Blood pressure systolic increased [None]
  - Pain [None]

NARRATIVE: CASE EVENT DATE: 20150603
